FAERS Safety Report 15563646 (Version 1)
Quarter: 2018Q4

REPORT INFORMATION
  Report Type: Spontaneous
  Country: US (occurrence: US)
  Receive Date: 20181029
  Receipt Date: 20181029
  Transmission Date: 20190205
  Serious: No
  Sender: FDA-Public Use
  Company Number: US-SA-2018SA295978

PATIENT
  Age: 33 Year
  Sex: Female

DRUGS (1)
  1. SELSUN BLUE ITCHY DRY SCALP [Suspect]
     Active Substance: PYRITHIONE ZINC
     Dosage: UNK
     Dates: start: 201810, end: 201810

REACTIONS (3)
  - Skin irritation [Unknown]
  - Condition aggravated [Unknown]
  - Drug ineffective [Unknown]
